FAERS Safety Report 9160274 (Version 1)
Quarter: 2013Q1

REPORT INFORMATION
  Report Type: Report from Study
  Country: DE (occurrence: DE)
  Receive Date: 20130313
  Receipt Date: 20130313
  Transmission Date: 20140127
  Serious: Yes (Other)
  Sender: FDA-Public Use
  Company Number: DE-ROCHE-1200600

PATIENT
  Age: 54 Year
  Sex: Female
  Weight: 78 kg

DRUGS (1)
  1. TOCILIZUMAB [Suspect]
     Indication: RHEUMATOID ARTHRITIS
     Route: 042
     Dates: start: 20110426

REACTIONS (1)
  - Deep vein thrombosis [Recovered/Resolved with Sequelae]
